FAERS Safety Report 4661119-3 (Version None)
Quarter: 2005Q2

REPORT INFORMATION
  Report Type: 
  Country: None (occurrence: None)
  Receive Date: 20050511
  Receipt Date: 20050428
  Transmission Date: 20051028
  Serious: Yes (Disabling, Congenital Anomaly)
  Sender: FDA-Public Use
  Company Number: S05-FRA-01658-02

PATIENT
  Age: 0 Day
  Sex: Male

DRUGS (1)
  1. CITALOPRAM HYDROBROMIDE [Suspect]
     Route: 064
     Dates: start: 20030101, end: 20030101

REACTIONS (6)
  - CONGENITAL CENTRAL NERVOUS SYSTEM ANOMALY [None]
  - CONGENITAL EYE DISORDER [None]
  - CORNEAL DISORDER [None]
  - DRUG EXPOSURE DURING PREGNANCY [None]
  - HAEMANGIOMA CONGENITAL [None]
  - MICROPHTHALMOS [None]
